FAERS Safety Report 14372132 (Version 2)
Quarter: 2018Q1

REPORT INFORMATION
  Report Type: Spontaneous
  Country: US (occurrence: US)
  Receive Date: 20180110
  Receipt Date: 20180206
  Transmission Date: 20180509
  Serious: No
  Sender: FDA-Public Use
  Company Number: US-009507513-1712USA006386

PATIENT
  Age: 33 Year
  Sex: Female
  Weight: 59.41 kg

DRUGS (9)
  1. NEXPLANON [Suspect]
     Active Substance: ETONOGESTREL
     Indication: CONTRACEPTION
     Dosage: 1 ROD, ONCE
     Route: 058
     Dates: start: 20171117, end: 20171212
  2. VALTREX [Concomitant]
     Active Substance: VALACYCLOVIR HYDROCHLORIDE
     Dosage: 800 MG, BID
     Route: 048
     Dates: start: 20170609
  3. TOPAMAX [Concomitant]
     Active Substance: TOPIRAMATE
     Dosage: 50 MG, BID
     Route: 048
     Dates: start: 20171106
  4. WELLBUTRIN XL [Concomitant]
     Active Substance: BUPROPION HYDROCHLORIDE
     Dosage: 150 MG, UNK
     Route: 048
     Dates: start: 20171106
  5. ROBAXIN [Concomitant]
     Active Substance: METHOCARBAMOL
     Dosage: 500 MG, TID
     Route: 048
     Dates: start: 20171206
  6. NEXPLANON [Suspect]
     Active Substance: ETONOGESTREL
     Dosage: UNK
     Dates: start: 20171212
  7. OMEPRAZOLE. [Concomitant]
     Active Substance: OMEPRAZOLE
     Dosage: 20 MG, UNK
     Route: 048
     Dates: start: 20171106
  8. GABAPENTIN. [Concomitant]
     Active Substance: GABAPENTIN
     Dosage: 100 MG, BID
     Route: 048
     Dates: start: 20171106
  9. MONTELUKAST [Concomitant]
     Active Substance: MONTELUKAST SODIUM
     Dosage: 10 MG, UNK
     Route: 048
     Dates: start: 20171106

REACTIONS (4)
  - Device dislocation [Recovered/Resolved]
  - Pain in extremity [Recovered/Resolved]
  - Device deployment issue [Recovered/Resolved]
  - Device breakage [Recovered/Resolved]

NARRATIVE: CASE EVENT DATE: 20171208
